FAERS Safety Report 15496186 (Version 5)
Quarter: 2020Q2

REPORT INFORMATION
  Report Type: Report from Study
  Country: US (occurrence: US)
  Receive Date: 20181012
  Receipt Date: 20200608
  Transmission Date: 20200713
  Serious: Yes (Hospitalization)
  Sender: FDA-Public Use
  Company Number: US-ACTELION-A-NJ2018-180075

PATIENT
  Age: 53 Year
  Sex: Female
  Weight: 81.63 kg

DRUGS (3)
  1. ADCIRCA [Concomitant]
     Active Substance: TADALAFIL
  2. TRACLEER [Suspect]
     Active Substance: BOSENTAN
     Indication: PULMONARY ARTERIAL HYPERTENSION
     Dosage: 125 MG, BID
     Route: 048
  3. REMODULIN [Suspect]
     Active Substance: TREPROSTINIL
     Indication: PRODUCT USED FOR UNKNOWN INDICATION
     Dosage: UNK
     Route: 058

REACTIONS (14)
  - Nausea [Unknown]
  - Vomiting [Unknown]
  - Pulmonary hypertension [Unknown]
  - Sleep disorder [Not Recovered/Not Resolved]
  - Application site pruritus [Unknown]
  - Gastroenteritis viral [Unknown]
  - Haemorrhoids [Recovered/Resolved]
  - Malaise [Unknown]
  - Product dose omission [Unknown]
  - Gastrointestinal haemorrhage [Recovered/Resolved]
  - Infusion site pain [Unknown]
  - Infusion site induration [Unknown]
  - Night sweats [Unknown]
  - Menopause [Unknown]

NARRATIVE: CASE EVENT DATE: 201912
